FAERS Safety Report 4900838-8 (Version None)
Quarter: 2006Q1

REPORT INFORMATION
  Report Type: 
  Country: None (occurrence: None)
  Receive Date: 20060113
  Receipt Date: 20051201
  Transmission Date: 20060701
  Serious: No
  Sender: FDA-Public Use
  Company Number: 2005SP004241

PATIENT
  Age: 79 Year
  Sex: Male
  Weight: 73.0291 kg

DRUGS (5)
  1. LUNESTA [Suspect]
     Indication: MIDDLE INSOMNIA
     Dosage: 3 MG; HS; ORAL
     Route: 048
     Dates: start: 20051019, end: 20051101
  2. TAMSULOSIN HCL [Concomitant]
  3. AVAPRO [Concomitant]
  4. SIMVASTATIN [Concomitant]
  5. VITAMIN B COMPLEX CAP [Concomitant]

REACTIONS (2)
  - PARADOXICAL DRUG REACTION [None]
  - PRURITUS [None]
